FAERS Safety Report 8018477-1 (Version None)
Quarter: 2012Q1

REPORT INFORMATION
  Report Type: 
  Country: None (occurrence: None)
  Receive Date: 20120103
  Receipt Date: 20111228
  Transmission Date: 20120608
  Serious: Yes (Death)
  Sender: FDA-Public Use
  Company Number: US-ASTELLAS-2011US008803

PATIENT
  Sex: Male

DRUGS (1)
  1. PROGRAF [Suspect]
     Indication: TRANSPLANT
     Dosage: 4 MG IN MORNING/3 MG IN EVENING
     Route: 065
     Dates: start: 20070401, end: 20111215

REACTIONS (1)
  - NEOPLASM MALIGNANT [None]
